FAERS Safety Report 13721162 (Version 1)
Quarter: 2017Q3

REPORT INFORMATION
  Report Type: Report from Study
  Country: JP (occurrence: JP)
  Receive Date: 20170706
  Receipt Date: 20170706
  Transmission Date: 20171127
  Serious: Yes (Other)
  Sender: FDA-Public Use
  Company Number: JP-ACTELION-A-CH2017-156136

PATIENT
  Age: 34 Year
  Sex: Female
  Weight: 50 kg

DRUGS (15)
  1. EPOPROSTENOL ACT [Suspect]
     Active Substance: EPOPROSTENOL
     Dosage: 34 NG/KG, PER MIN
     Route: 042
     Dates: start: 20160805, end: 20160823
  2. EPOPROSTENOL ACT [Suspect]
     Active Substance: EPOPROSTENOL
     Indication: PULMONARY ARTERIAL HYPERTENSION
     Dosage: 135.9 NG/KG, PER MIN
     Route: 042
     Dates: start: 20160404
  3. EPOPROSTENOL ACT [Suspect]
     Active Substance: EPOPROSTENOL
     Dosage: 82.8 NG/KG, PER MIN
     Route: 042
     Dates: start: 20150212
  4. ALDACTONE A [Concomitant]
     Active Substance: SPIRONOLACTONE
  5. REVATIO [Concomitant]
     Active Substance: SILDENAFIL CITRATE
  6. OXYGEN. [Concomitant]
     Active Substance: OXYGEN
  7. EPOPROSTENOL ACT [Suspect]
     Active Substance: EPOPROSTENOL
     Dosage: 70 NG/KG, PER MIN
     Route: 042
     Dates: start: 20140209
  8. EPOPROSTENOL ACT [Suspect]
     Active Substance: EPOPROSTENOL
     Dosage: 72.5 NG/KG, PER MIN
     Route: 042
     Dates: start: 20140309
  9. EPOPROSTENOL ACT [Suspect]
     Active Substance: EPOPROSTENOL
     Dosage: 80 NG/KG, PER MIN
     Route: 042
     Dates: start: 20141015
  10. TRACLEER [Concomitant]
     Active Substance: BOSENTAN
     Indication: PULMONARY ARTERIAL HYPERTENSION
  11. ADCIRCA [Concomitant]
     Active Substance: TADALAFIL
  12. EPOPROSTENOL ACT [Suspect]
     Active Substance: EPOPROSTENOL
     Dosage: 74.7 NG/KG, PER MIN
     Route: 042
     Dates: start: 20140826
  13. LASIX [Concomitant]
     Active Substance: FUROSEMIDE
  14. VOLIBRIS [Concomitant]
     Active Substance: AMBRISENTAN
  15. SAMSCA [Concomitant]
     Active Substance: TOLVAPTAN

REACTIONS (2)
  - Haemoglobin decreased [Recovered/Resolved]
  - Lung transplant [Unknown]

NARRATIVE: CASE EVENT DATE: 20160805
